FAERS Safety Report 5455531-2 (Version None)
Quarter: 2007Q3

REPORT INFORMATION
  Report Type: 
  Country: None (occurrence: None)
  Receive Date: 20070913
  Receipt Date: 20070913
  Transmission Date: 20080115
  Serious: Yes (Other)
  Sender: FDA-Public Use
  Company Number: None

PATIENT
  Sex: Female
  Weight: 130.1823 kg

DRUGS (16)
  1. ACTOS [Suspect]
     Indication: DIABETES MELLITUS
  2. CLONAZEPAM [Concomitant]
  3. HYDROXIZINE [Concomitant]
  4. LEVOXYL [Concomitant]
  5. VYTORIN [Concomitant]
  6. SKELAXIN [Concomitant]
  7. TRAMADOL HCL [Concomitant]
  8. GABAPENTIN [Concomitant]
  9. NORVASC [Concomitant]
  10. METOPROLOL SUCCINATE [Concomitant]
  11. SPIRIVA [Concomitant]
  12. FUROSEMIDE [Concomitant]
  13. METFORMIN HCL [Concomitant]
  14. CYMBALTA [Concomitant]
  15. PROTONIX [Concomitant]
  16. DETROL LA [Concomitant]

REACTIONS (1)
  - CORONARY ARTERY DISEASE [None]
